FAERS Safety Report 22397630 (Version 2)
Quarter: 2023Q4

REPORT INFORMATION
  Report Type: Report from Study
  Country: CA (occurrence: CA)
  Receive Date: 20230602
  Receipt Date: 20231120
  Transmission Date: 20240110
  Serious: Yes (Death, Hospitalization)
  Sender: FDA-Public Use
  Company Number: CA-JNJFOC-20230560192

PATIENT
  Age: 90 Year
  Sex: Male

DRUGS (2)
  1. IMBRUVICA [Suspect]
     Active Substance: IBRUTINIB
     Indication: Waldenstrom^s macroglobulinaemia
     Route: 048
     Dates: start: 20221130
  2. IMBRUVICA [Suspect]
     Active Substance: IBRUTINIB
     Indication: Waldenstrom^s macroglobulinaemia
     Route: 048

REACTIONS (7)
  - Death [Fatal]
  - Hypotension [Unknown]
  - Bronchitis [Unknown]
  - Limb injury [Fatal]
  - Fall [Fatal]
  - Myocardial infarction [Fatal]
  - Urinary tract infection [Fatal]

NARRATIVE: CASE EVENT DATE: 20231104
